FAERS Safety Report 5509014-1 (Version None)
Quarter: 2007Q4

REPORT INFORMATION
  Report Type: 
  Country: None (occurrence: None)
  Receive Date: 20071107
  Receipt Date: 20071106
  Transmission Date: 20080405
  Serious: Yes (Death, Other)
  Sender: FDA-Public Use
  Company Number: US-BRISTOL-MYERS SQUIBB COMPANY-13971437

PATIENT

DRUGS (2)
  1. COUMADIN [Suspect]
  2. PLAVIX [Suspect]

REACTIONS (2)
  - DEATH [None]
  - HAEMORRHAGE [None]
